FAERS Safety Report 10100166 (Version 2)
Quarter: 2014Q2

REPORT INFORMATION
  Report Type: Spontaneous
  Country: US (occurrence: US)
  Receive Date: 20140423
  Receipt Date: 20140423
  Transmission Date: 20141212
  Serious: No
  Sender: FDA-Public Use
  Company Number: US-GILEAD-2013-0075284

PATIENT
  Sex: Female

DRUGS (5)
  1. LETAIRIS [Suspect]
     Indication: COR PULMONALE CHRONIC
     Dosage: 10 MG, QD
     Dates: start: 20110222
  2. LETAIRIS [Suspect]
     Indication: SARCOIDOSIS
  3. LETAIRIS [Suspect]
     Indication: INTERSTITIAL LUNG DISEASE
  4. ADCIRCA [Concomitant]
  5. REMODULIN [Concomitant]

REACTIONS (3)
  - Malaise [Unknown]
  - Infusion site swelling [Unknown]
  - Infusion site pain [Unknown]
